FAERS Safety Report 8385918-X (Version None)
Quarter: 2012Q2

REPORT INFORMATION
  Report Type: 
  Country: None (occurrence: None)
  Receive Date: 20120525
  Receipt Date: 20120514
  Transmission Date: 20120825
  Serious: Yes (Other)
  Sender: FDA-Public Use
  Company Number: US-JNJFOC-20120414283

PATIENT
  Sex: Male
  Weight: 70.31 kg

DRUGS (3)
  1. REMICADE [Suspect]
     Route: 042
     Dates: start: 20120411
  2. CIPROFLOXACIN HCL [Concomitant]
     Route: 048
  3. REMICADE [Suspect]
     Indication: CROHN'S DISEASE
     Route: 042
     Dates: start: 20120328

REACTIONS (3)
  - POLYNEUROPATHY [None]
  - WEIGHT DECREASED [None]
  - RASH [None]
